FAERS Safety Report 8582052-0 (Version None)
Quarter: 2012Q3

REPORT INFORMATION
  Report Type: 
  Country: None (occurrence: None)
  Receive Date: 20120809
  Receipt Date: 20120803
  Transmission Date: 20120928
  Serious: Yes (Death)
  Sender: FDA-Public Use
  Company Number: US-PFIZER INC-2012190669

PATIENT
  Age: 74 Year
  Sex: Female

DRUGS (1)
  1. VFEND [Suspect]
     Indication: PNEUMONIA
     Dosage: 50 MG, 2X/DAY
     Dates: start: 20120523

REACTIONS (1)
  - MYOCARDIAL INFARCTION [None]
